FAERS Safety Report 7591485-0 (Version None)
Quarter: 2011Q3

REPORT INFORMATION
  Report Type: 
  Country: None (occurrence: None)
  Receive Date: 20110701
  Receipt Date: 20110701
  Transmission Date: 20111222
  Serious: Yes (Other)
  Sender: FDA-Public Use
  Company Number: None

PATIENT
  Age: 53 Year
  Sex: Female
  Weight: 61.2356 kg

DRUGS (1)
  1. ZOLOFT [Suspect]
     Indication: DEPRESSION
     Dosage: 1 DAILY
     Dates: start: 20101001, end: 20110101

REACTIONS (9)
  - ASTHENIA [None]
  - PAIN [None]
  - FATIGUE [None]
  - MYALGIA [None]
  - MUSCULOSKELETAL STIFFNESS [None]
  - ARTHRALGIA [None]
  - ARTHRITIS [None]
  - PAIN IN EXTREMITY [None]
  - FIBROMYALGIA [None]
